FAERS Safety Report 19569016 (Version 1)
Quarter: 2021Q3

REPORT INFORMATION
  Report Type: Spontaneous
  Country: MX (occurrence: MX)
  Receive Date: 20210714
  Receipt Date: 20210714
  Transmission Date: 20211014
  Serious: Yes (Other)
  Sender: FDA-Public Use
  Company Number: MX-LUNDBECK-DKLU3035618

PATIENT
  Age: 8 Year
  Sex: Male
  Weight: 28 kg

DRUGS (1)
  1. FRISIUM [Suspect]
     Active Substance: CLOBAZAM
     Indication: INFANTILE SPASMS
     Route: 048
     Dates: start: 2016

REACTIONS (3)
  - Drug ineffective [Unknown]
  - Inappropriate schedule of product administration [Unknown]
  - Drug withdrawal convulsions [Unknown]

NARRATIVE: CASE EVENT DATE: 20210708
